FAERS Safety Report 12611670 (Version 2)
Quarter: 2016Q3

REPORT INFORMATION
  Report Type: Spontaneous
  Country: AU (occurrence: AU)
  Receive Date: 20160801
  Receipt Date: 20160930
  Transmission Date: 20161109
  Serious: Yes (Other)
  Sender: FDA-Public Use
  Company Number: AU-NOVOPROD-502342

PATIENT
  Age: 63 Year
  Sex: Female
  Weight: 110 kg

DRUGS (6)
  1. LIPITOR [Concomitant]
     Active Substance: ATORVASTATIN CALCIUM
     Dosage: STARTED APPROXIMATELY 23 YRS AGO
  2. AMLO                               /00972402/ [Concomitant]
     Indication: HYPERTENSION
     Dosage: START DATE: 5 YRS
  3. NOVORAPID [Suspect]
     Active Substance: INSULIN ASPART
     Indication: TYPE 2 DIABETES MELLITUS
     Dosage: 8 U, TID
     Route: 058
     Dates: start: 201501, end: 20160610
  4. ACIMAX [Concomitant]
     Active Substance: OMEPRAZOLE
     Indication: GASTROOESOPHAGEAL REFLUX DISEASE
     Dosage: STARTED GREATER THAN OR EQUAL TO 20 YRS
  5. LANTUS [Concomitant]
     Active Substance: INSULIN GLARGINE
     Indication: TYPE 2 DIABETES MELLITUS
     Dosage: STARTED 5 YRS AGO
     Route: 065
  6. DIABEX [Concomitant]
     Active Substance: METFORMIN HYDROCHLORIDE
     Indication: TYPE 2 DIABETES MELLITUS
     Dosage: STARTED 23 YRS AGO
     Route: 065

REACTIONS (8)
  - Weight increased [Recovering/Resolving]
  - Chest discomfort [Recovered/Resolved]
  - Vision blurred [Recovered/Resolved]
  - Urticaria [Not Recovered/Not Resolved]
  - Swollen tongue [Recovered/Resolved]
  - Abdominal distension [Recovering/Resolving]
  - Lip swelling [Recovered/Resolved]
  - Wheezing [Recovered/Resolved]

NARRATIVE: CASE EVENT DATE: 201501
